FAERS Safety Report 21206153 (Version 2)
Quarter: 2022Q4

REPORT INFORMATION
  Report Type: Spontaneous
  Country: CA (occurrence: CA)
  Receive Date: 20220812
  Receipt Date: 20221110
  Transmission Date: 20230113
  Serious: Yes (Hospitalization, Other)
  Sender: FDA-Public Use
  Company Number: None

PATIENT
  Age: 11 Year
  Sex: Male
  Weight: 37 kg

DRUGS (27)
  1. METHOTREXATE [Suspect]
     Active Substance: METHOTREXATE
     Indication: T-cell type acute leukaemia
  2. DOXORUBICIN HYDROCHLORIDE [Suspect]
     Active Substance: DOXORUBICIN HYDROCHLORIDE
     Indication: T-cell type acute leukaemia
  3. CYTARABINE [Suspect]
     Active Substance: CYTARABINE
     Indication: T-cell type acute leukaemia
     Dosage: POWDER FOR SOLUTION
     Route: 037
  4. PEGASPARGASE [Suspect]
     Active Substance: PEGASPARGASE
     Indication: Product used for unknown indication
     Dosage: 3225.0 UNIT
  5. VINCRISTINE SULFATE [Suspect]
     Active Substance: VINCRISTINE SULFATE
     Indication: T-cell type acute leukaemia
  6. ZINECARD [Suspect]
     Active Substance: DEXRAZOXANE HYDROCHLORIDE
     Indication: T-cell type acute leukaemia
     Dosage: POWDER FOR SOLUTION
     Route: 042
  7. ACETAMINOPHEN [Concomitant]
     Active Substance: ACETAMINOPHEN
  8. ALLOPURINOL [Concomitant]
     Active Substance: ALLOPURINOL
  9. ATIVAN [Concomitant]
     Active Substance: LORAZEPAM
  10. CEFTRIAXONE [Concomitant]
     Active Substance: CEFTRIAXONE
     Dosage: POWDER FOR SOLUTION
     Route: 030
  11. DEXAMETHASONE [Concomitant]
     Active Substance: DEXAMETHASONE
  12. DIMENHYDRINATE [Concomitant]
     Active Substance: DIMENHYDRINATE
  13. FASTURTEC [Concomitant]
     Active Substance: RASBURICASE
     Dosage: POWDER FOR SOLUTION
     Route: 042
  14. GABAPENTIN [Concomitant]
     Active Substance: GABAPENTIN
  15. HYDROCORTISONE [Concomitant]
     Active Substance: HYDROCORTISONE
     Dosage: POWDER FOR SOLUTION
     Route: 030
  16. IBUPROFEN [Concomitant]
     Active Substance: IBUPROFEN
  17. LASIX [Concomitant]
     Active Substance: FUROSEMIDE
  18. MAGNESIUM [Concomitant]
     Active Substance: MAGNESIUM
  19. MELATONIN [Concomitant]
     Active Substance: MELATONIN
  20. MORPHINE [Concomitant]
     Active Substance: MORPHINE
  21. VITAMINS [Concomitant]
     Active Substance: VITAMINS
  22. MYCAMINE [Concomitant]
     Active Substance: MICAFUNGIN SODIUM
     Dosage: POWDER FOR SOLUTION
     Route: 042
  23. ONDANSETRON [Concomitant]
     Active Substance: ONDANSETRON
  24. SUCRALFATE [Concomitant]
     Active Substance: SUCRALFATE
  25. PIPERACILLIN SODIUM\TAZOBACTAM SODIUM [Concomitant]
     Active Substance: PIPERACILLIN SODIUM\TAZOBACTAM SODIUM
     Dosage: POWDER FOR SOLUTION
     Route: 042
  26. VITAMIN K [Concomitant]
     Active Substance: PHYTONADIONE
  27. VYVANSE [Concomitant]
     Active Substance: LISDEXAMFETAMINE DIMESYLATE

REACTIONS (3)
  - Febrile neutropenia [Recovered/Resolved]
  - Appendicitis [Recovered/Resolved]
  - Abdominal pain [Recovered/Resolved]
